FAERS Safety Report 7139115-6 (Version None)
Quarter: 2010Q4

REPORT INFORMATION
  Report Type: 
  Country: None (occurrence: None)
  Receive Date: 20101206
  Receipt Date: 20101111
  Transmission Date: 20110411
  Serious: Yes (Other)
  Sender: FDA-Public Use
  Company Number: B0687571A

PATIENT
  Age: 67 Year
  Sex: Male

DRUGS (13)
  1. CARVEDILOL [Suspect]
     Dosage: 12.5MG TWICE PER DAY
     Route: 065
  2. ALLOPURINOL [Suspect]
     Dosage: 100MG PER DAY
     Route: 065
  3. ACETAMINOPHEN [Suspect]
     Route: 065
  4. FRUSEMIDE [Suspect]
     Dosage: 20MG PER DAY
     Route: 065
  5. AMLODIPINE [Suspect]
     Dosage: 5MG PER DAY
     Route: 065
  6. ASPIRIN [Suspect]
     Dosage: 100MG PER DAY
     Route: 065
  7. PANTOPRAZOLE [Suspect]
     Dosage: 40MG PER DAY
     Route: 065
  8. ATORVASTATIN [Suspect]
     Dosage: 40MG PER DAY
     Route: 065
  9. SERTRALINE [Suspect]
     Dosage: 100MG PER DAY
     Route: 065
  10. RAMIPRIL [Suspect]
     Dosage: 5MG PER DAY
     Route: 065
  11. GLUCOSAMINE [Concomitant]
  12. IBUPROFEN [Concomitant]
  13. CODEINE [Concomitant]

REACTIONS (5)
  - DYSPNOEA [None]
  - FATIGUE [None]
  - OEDEMA PERIPHERAL [None]
  - PALPITATIONS [None]
  - RENAL FAILURE CHRONIC [None]
